FAERS Safety Report 9598820 (Version 1)
Quarter: 2013Q4

REPORT INFORMATION
  Report Type: Spontaneous
  Country: US (occurrence: US)
  Receive Date: 20131004
  Receipt Date: 20131004
  Transmission Date: 20140711
  Serious: No
  Sender: FDA-Public Use
  Company Number: US-AMGEN-USASP2013025890

PATIENT
  Age: 49 Year
  Sex: Female
  Weight: 83.9 kg

DRUGS (7)
  1. ENBREL [Suspect]
     Indication: PRODUCT USED FOR UNKNOWN INDICATION
     Dosage: 50 MG, QWK
     Route: 058
  2. ALLOPURINOL [Concomitant]
     Dosage: 300 MG, UNK
  3. LANTUS [Concomitant]
     Dosage: UNK
  4. UROCIT-K [Concomitant]
     Dosage: UNK
  5. METFORMIN [Concomitant]
     Dosage: 850 MG, UNK
  6. AMARYL [Concomitant]
     Dosage: 4 MG, UNK
  7. XANAX [Concomitant]
     Dosage: 2 MG, UNK

REACTIONS (1)
  - Drug ineffective [Unknown]
